FAERS Safety Report 4608765-0 (Version None)
Quarter: 2005Q1

REPORT INFORMATION
  Report Type: 
  Country: None (occurrence: None)
  Receive Date: 20050315
  Receipt Date: 20050225
  Transmission Date: 20050727
  Serious: Yes (Hospitalization)
  Sender: FDA-Public Use
  Company Number: BW-BRISTOL-MYERS SQUIBB COMPANY-12876991

PATIENT
  Age: 46 Year
  Sex: Female

DRUGS (2)
  1. EFAVIRENZ [Suspect]
     Indication: HIV INFECTION
     Route: 048
     Dates: start: 20040816
  2. COMBIVIR [Suspect]
     Indication: HIV INFECTION
     Dosage: ^900 MG^ DAILY
     Route: 048
     Dates: start: 20040816, end: 20050124

REACTIONS (2)
  - ANAEMIA [None]
  - GASTRITIS [None]
